FAERS Safety Report 17525474 (Version 1)
Quarter: 2020Q1

REPORT INFORMATION
  Report Type: Spontaneous
  Country: US (occurrence: US)
  Receive Date: 20200310
  Receipt Date: 20200310
  Transmission Date: 20200409
  Serious: No
  Sender: FDA-Public Use
  Company Number: US-LANNETT COMPANY, INC.-US-2020LAN000049

PATIENT
  Sex: Female

DRUGS (1)
  1. SUMATRIPTAN. [Suspect]
     Active Substance: SUMATRIPTAN
     Indication: MIGRAINE
     Dosage: 1 DF AT ONSET OF MIGRAINE, THEN IF NEEDED (1) 2 HOURS LATER
     Route: 045

REACTIONS (3)
  - Product packaging quantity issue [Unknown]
  - Dysgeusia [Recovered/Resolved]
  - Product quality issue [Unknown]
